FAERS Safety Report 7324241-9 (Version None)
Quarter: 2011Q1

REPORT INFORMATION
  Report Type: 
  Country: None (occurrence: None)
  Receive Date: 20110202
  Receipt Date: 20101216
  Transmission Date: 20110831
  Serious: No
  Sender: FDA-Public Use
  Company Number: 2010-16296

PATIENT
  Age: 65 Year
  Sex: Male
  Weight: 68 kg

DRUGS (1)
  1. RAPAFLO [Suspect]
     Indication: PROSTATOMEGALY
     Dosage: 8 MG, DAILY, ORAL
     Route: 048
     Dates: start: 20100801, end: 20100801

REACTIONS (4)
  - PANIC ATTACK [None]
  - TREMOR [None]
  - ANXIETY [None]
  - HEART RATE INCREASED [None]
